FAERS Safety Report 5868893-9 (Version None)
Quarter: 2008Q3

REPORT INFORMATION
  Report Type: 
  Country: None (occurrence: None)
  Receive Date: 20080902
  Receipt Date: 20080902
  Transmission Date: 20090109
  Serious: No
  Sender: FDA-Public Use
  Company Number: None

PATIENT
  Age: 12 Year
  Sex: Male

DRUGS (1)
  1. SINGULAIR [Suspect]

REACTIONS (5)
  - APATHY [None]
  - DEPRESSED MOOD [None]
  - DEPRESSION [None]
  - IMMOBILE [None]
  - SOCIAL AVOIDANT BEHAVIOUR [None]
